FAERS Safety Report 18603610 (Version 1)
Quarter: 2020Q4

REPORT INFORMATION
  Report Type: Spontaneous
  Country: US (occurrence: US)
  Receive Date: 20201211
  Receipt Date: 20201211
  Transmission Date: 20210114
  Serious: No
  Sender: FDA-Public Use
  Company Number: US-SA-2020SA354835

PATIENT

DRUGS (1)
  1. AUBAGIO [Suspect]
     Active Substance: TERIFLUNOMIDE
     Indication: MULTIPLE SCLEROSIS
     Dosage: 7 MG, QD
     Route: 048
     Dates: start: 20201105, end: 202011

REACTIONS (11)
  - Vomiting [Unknown]
  - Hyperhidrosis [Unknown]
  - Confusional state [Unknown]
  - Agitation [Unknown]
  - Emotional disorder [Unknown]
  - Irritability [Unknown]
  - Nausea [Unknown]
  - Decreased appetite [Unknown]
  - Anxiety [Unknown]
  - Depression [Unknown]
  - Paraesthesia [Unknown]

NARRATIVE: CASE EVENT DATE: 202011
